FAERS Safety Report 8449244-2 (Version None)
Quarter: 2012Q2

REPORT INFORMATION
  Report Type: 
  Country: None (occurrence: None)
  Receive Date: 20120613
  Receipt Date: 20120613
  Transmission Date: 20120825
  Serious: Yes (Hospitalization)
  Sender: FDA-Public Use
  Company Number: None

PATIENT
  Age: 74 Year
  Sex: Male
  Weight: 109.8 kg

DRUGS (1)
  1. LISINOPRIL [Suspect]
     Dates: start: 20120219

REACTIONS (1)
  - ANGIOEDEMA [None]
